FAERS Safety Report 8546444-8 (Version None)
Quarter: 2012Q3

REPORT INFORMATION
  Report Type: 
  Country: None (occurrence: None)
  Receive Date: 20120727
  Receipt Date: 20120110
  Transmission Date: 20120928
  Serious: No
  Sender: FDA-Public Use
  Company Number: US-ASTRAZENECA-2012SE01928

PATIENT
  Age: 45 Year
  Sex: Male
  Weight: 113.4 kg

DRUGS (8)
  1. CITALOPRAM HYDROBROMIDE [Concomitant]
  2. GEMFIBROZIL [Concomitant]
  3. NEURONTIN [Concomitant]
  4. SEROQUEL [Suspect]
     Route: 048
  5. PROPRANOLOL [Concomitant]
  6. SEROQUEL [Suspect]
     Indication: BIPOLAR DISORDER
     Route: 048
  7. LISINOPRIL AND HYDROCHLOROTHIAZIDE [Concomitant]
  8. NAPROXEN [Concomitant]

REACTIONS (6)
  - DRUG DOSE OMISSION [None]
  - MOOD SWINGS [None]
  - THINKING ABNORMAL [None]
  - INSOMNIA [None]
  - DRUG WITHDRAWAL SYNDROME [None]
  - PYREXIA [None]
